FAERS Safety Report 10144534 (Version 1)
Quarter: 2014Q2

REPORT INFORMATION
  Report Type: Spontaneous
  Country: US (occurrence: US)
  Receive Date: 20140430
  Receipt Date: 20140430
  Transmission Date: 20141212
  Serious: Yes (Hospitalization)
  Sender: FDA-Public Use
  Company Number: US-SANOFI-AVENTIS-2013SA040722

PATIENT
  Sex: Female
  Weight: 83.9 kg

DRUGS (7)
  1. LOVENOX [Suspect]
     Indication: PRODUCT USED FOR UNKNOWN INDICATION
     Route: 065
  2. BLINDED THERAPY [Concomitant]
     Route: 042
     Dates: start: 20121205, end: 20130306
  3. DOCETAXEL [Concomitant]
     Indication: UTERINE LEIOMYOSARCOMA
     Route: 042
     Dates: start: 20121205, end: 20130306
  4. DOCETAXEL [Concomitant]
     Indication: UTERINE LEIOMYOSARCOMA
     Route: 042
  5. GEMCITABINE [Concomitant]
     Route: 042
     Dates: start: 20121205, end: 20130306
  6. GEMCITABINE [Concomitant]
     Route: 042
  7. PEGFILGRASTIM [Concomitant]
     Indication: UTERINE LEIOMYOSARCOMA
     Route: 058
     Dates: start: 20121205, end: 20130306

REACTIONS (1)
  - Haematoma [Recovered/Resolved]
